FAERS Safety Report 8438363-2 (Version None)
Quarter: 2012Q2

REPORT INFORMATION
  Report Type: 
  Country: None (occurrence: None)
  Receive Date: 20120614
  Receipt Date: 20120606
  Transmission Date: 20120825
  Serious: Yes (Other)
  Sender: FDA-Public Use
  Company Number: HR-MERCK-1206USA01330

PATIENT
  Age: 76 Year
  Sex: Male
  Weight: 105 kg

DRUGS (3)
  1. INVANZ [Suspect]
     Indication: CYSTITIS KLEBSIELLA
     Route: 041
     Dates: start: 20120305, end: 20120314
  2. SINERSUL [Concomitant]
     Indication: OSTEOMYELITIS
     Dosage: STRENGHT REPORTED AS 400 MG/80 MG
     Route: 048
     Dates: start: 20120224, end: 20120316
  3. RIMACTANE [Concomitant]
     Indication: PULMONARY TUBERCULOSIS
     Route: 048
     Dates: start: 20120131, end: 20120318

REACTIONS (4)
  - HALLUCINATION [None]
  - TREMOR [None]
  - AGITATION [None]
  - DELUSION [None]
